FAERS Safety Report 5875067-4 (Version None)
Quarter: 2008Q3

REPORT INFORMATION
  Report Type: 
  Country: None (occurrence: None)
  Receive Date: 20080908
  Receipt Date: 20080908
  Transmission Date: 20090109
  Serious: Yes (Other)
  Sender: FDA-Public Use
  Company Number: None

PATIENT
  Age: 57 Year
  Sex: Female
  Weight: 90.7194 kg

DRUGS (3)
  1. CHANTIX [Suspect]
     Indication: SMOKING CESSATION THERAPY
     Dosage: 1 MG DAILY ORAL
     Route: 048
  2. EFFEXOR XR [Suspect]
     Indication: DEPRESSION
     Dosage: 75 MG DAILY ORAL
     Route: 048
  3. EFFEXOR XR [Suspect]
     Indication: STRESS
     Dosage: 75 MG DAILY ORAL
     Route: 048

REACTIONS (4)
  - ABNORMAL DREAMS [None]
  - AGITATION [None]
  - DRUG INTERACTION [None]
  - SUICIDAL IDEATION [None]
